FAERS Safety Report 9099276 (Version 4)
Quarter: 2016Q1

REPORT INFORMATION
  Report Type: Spontaneous
  Country: US (occurrence: US)
  Receive Date: 20130214
  Receipt Date: 20160110
  Transmission Date: 20160526
  Serious: Yes (Other)
  Sender: FDA-Public Use
  Company Number: US-COVIDIEN/TYCO HEALTHCARE/MALLINCKRODT-T201300769

PATIENT
  Age: 32 Year
  Sex: Female
  Weight: 77.98 kg

DRUGS (8)
  1. PRENATAL VITAMINS                  /01549301/ [Concomitant]
     Active Substance: VITAMINS
  2. SERTRALINE [Concomitant]
     Active Substance: SERTRALINE HYDROCHLORIDE
     Dosage: 100 MG, UNK
  3. ROXI [Suspect]
     Active Substance: UNSPECIFIED INGREDIENT
  4. FENTANYL. [Suspect]
     Active Substance: FENTANYL
     Dosage: UNK
     Dates: start: 201302
  5. FENTANYL TRANSDERMAL SYSTEM [Suspect]
     Active Substance: FENTANYL
     Indication: PAIN
     Dosage: 100 MCG/HR Q 72 HOURS
     Route: 062
     Dates: start: 20130204, end: 201302
  6. ROXICODONE [Suspect]
     Active Substance: OXYCODONE HYDROCHLORIDE
     Dosage: 7.5 MG, 14-6HRS PRN
  7. KLONOPIN [Concomitant]
     Active Substance: CLONAZEPAM
     Dosage: 1 MG, Q6HRS
  8. CARAFATE [Concomitant]
     Active Substance: SUCRALFATE
     Dosage: 1000 MG, QID

REACTIONS (6)
  - Premature delivery [Recovered/Resolved]
  - Inappropriate schedule of drug administration [Recovered/Resolved]
  - Application site erythema [Recovered/Resolved]
  - Wrong technique in product usage process [Unknown]
  - Application site pruritus [Recovered/Resolved]
  - Exposure during pregnancy [Unknown]

NARRATIVE: CASE EVENT DATE: 20130204
